FAERS Safety Report 6104379-4 (Version None)
Quarter: 2009Q1

REPORT INFORMATION
  Report Type: 
  Country: None (occurrence: None)
  Receive Date: 20090302
  Receipt Date: 20090217
  Transmission Date: 20090719
  Serious: Yes (Other)
  Sender: FDA-Public Use
  Company Number: 197822

PATIENT
  Age: 55 Year
  Sex: Female

DRUGS (3)
  1. PACLITAXEL HOSPIRA 300 MG/50 ML (PACLITAXEL) [Suspect]
     Indication: BREAST CANCER
     Dosage: 324 MG, UNKNOWN, UNKNOWN
     Dates: start: 20081202, end: 20090210
  2. ANZATAX INJECTION CONCENTRATE 150MG/25ML (PACLITAXEL) [Suspect]
     Indication: BREAST CANCER
     Dosage: 324 MG, UKNOWN, UNKNOWN
     Dates: start: 20081202, end: 20090210
  3. PACLITAXEL 100 MG/16,7 ML (PACLITAXEL) [Suspect]
     Indication: BREAST CANCER
     Dosage: 324 MG, UNKNOWN, UNKNOWN
     Dates: start: 20081202, end: 20090210

REACTIONS (4)
  - CHEST DISCOMFORT [None]
  - DRUG HYPERSENSITIVITY [None]
  - DYSPNOEA [None]
  - FLUSHING [None]
